FAERS Safety Report 12941407 (Version 1)
Quarter: 2016Q4

REPORT INFORMATION
  Report Type: Spontaneous
  Country: DK (occurrence: DK)
  Receive Date: 20161115
  Receipt Date: 20161115
  Transmission Date: 20170207
  Serious: Yes (Hospitalization, Disabling)
  Sender: FDA-Public Use
  Company Number: DK-TEVA-710633ACC

PATIENT
  Age: 69 Year
  Sex: Male

DRUGS (5)
  1. XARELTO [Suspect]
     Active Substance: RIVAROXABAN
     Indication: ATRIAL FIBRILLATION
     Dosage: 20 MILLIGRAM DAILY; STRENGTH: 20 MG
     Route: 048
     Dates: start: 20130411, end: 20161030
  2. SIMVASTATIN ^ACTAVIS^ [Suspect]
     Active Substance: SIMVASTATIN
     Indication: THROMBOSIS PROPHYLAXIS
     Dosage: 40 MILLIGRAM DAILY; STRENGTH: 40 MG
     Route: 048
     Dates: start: 20160411
  3. FOLIMET [Concomitant]
     Indication: VITAMIN SUPPLEMENTATION
  4. ANCOZAN [Concomitant]
     Active Substance: LOSARTAN POTASSIUM
     Indication: HYPERTENSION
  5. ALLOPURINOL ^DAK^ [Concomitant]
     Indication: BLOOD URIC ACID INCREASED

REACTIONS (7)
  - Basal ganglia haemorrhage [Unknown]
  - Cerebral haemorrhage [Unknown]
  - Paraesthesia [Unknown]
  - Hemiparesis [Unknown]
  - Facial paresis [Unknown]
  - Hemiplegia [Unknown]
  - Dysarthria [Unknown]

NARRATIVE: CASE EVENT DATE: 20161030
